FAERS Safety Report 4570627-5 (Version None)
Quarter: 2005Q1

REPORT INFORMATION
  Report Type: 
  Country: None (occurrence: None)
  Receive Date: 20050202
  Receipt Date: 20050117
  Transmission Date: 20050727
  Serious: Yes (Death, Hospitalization)
  Sender: FDA-Public Use
  Company Number: US_0501110410

PATIENT
  Age: 71 Year
  Sex: Male
  Weight: 47 kg

DRUGS (1)
  1. FORTEO [Suspect]
     Indication: OSTEOPOROSIS
     Dosage: 20 UG/L DAY
     Dates: start: 20040117, end: 20050106

REACTIONS (1)
  - PANCREATITIS ACUTE [None]
